FAERS Safety Report 21773679 (Version 1)
Quarter: 2022Q4

REPORT INFORMATION
  Report Type: Spontaneous
  Country: FR (occurrence: FR)
  Receive Date: 20221223
  Receipt Date: 20221223
  Transmission Date: 20230113
  Serious: Yes (Hospitalization)
  Sender: FDA-Public Use
  Company Number: None

PATIENT
  Age: 65 Year
  Sex: Male

DRUGS (5)
  1. CARBOPLATIN [Suspect]
     Active Substance: CARBOPLATIN
     Indication: Lung adenocarcinoma
     Dosage: 450 MG
     Route: 042
     Dates: start: 20220614, end: 20220614
  2. CARBOPLATIN [Suspect]
     Active Substance: CARBOPLATIN
     Dosage: 520 MG
     Route: 042
     Dates: start: 20220804, end: 20220804
  3. PACLITAXEL [Suspect]
     Active Substance: PACLITAXEL
     Indication: Lung adenocarcinoma
     Dosage: 180 MG
     Route: 042
     Dates: start: 20220614, end: 20220614
  4. PACLITAXEL [Suspect]
     Active Substance: PACLITAXEL
     Dosage: 180 MG
     Route: 042
     Dates: start: 20220621, end: 20220621
  5. PEMETREXED [Suspect]
     Active Substance: PEMETREXED
     Indication: Lung adenocarcinoma
     Dosage: 1000 MG
     Route: 042
     Dates: start: 20220804, end: 20220804

REACTIONS (4)
  - Hepatic cytolysis [Not Recovered/Not Resolved]
  - Cholestasis [Not Recovered/Not Resolved]
  - Condition aggravated [Not Recovered/Not Resolved]
  - Off label use [Unknown]

NARRATIVE: CASE EVENT DATE: 20220601
